FAERS Safety Report 10740555 (Version 1)
Quarter: 2015Q1

REPORT INFORMATION
  Report Type: Spontaneous
  Country: US (occurrence: US)
  Receive Date: 20150127
  Receipt Date: 20150127
  Transmission Date: 20150721
  Serious: Yes (Hospitalization)
  Sender: FDA-Public Use
  Company Number: US-JNJFOC-20150111701

PATIENT
  Age: 58 Year
  Sex: Male

DRUGS (2)
  1. ACETAMINOPHEN ADULT EXTRA STRENGTH [Suspect]
     Active Substance: ACETAMINOPHEN
     Indication: SUICIDE ATTEMPT
     Route: 048
     Dates: start: 20140827
  2. ACETAMINOPHEN ADULT EXTRA STRENGTH [Suspect]
     Active Substance: ACETAMINOPHEN
     Route: 048

REACTIONS (8)
  - Suicide attempt [None]
  - Alanine aminotransferase increased [None]
  - Blood bilirubin increased [Unknown]
  - Toxicity to various agents [Unknown]
  - Aspartate aminotransferase increased [None]
  - Transaminases increased [Recovering/Resolving]
  - Acidosis [Unknown]
  - Exposure via ingestion [None]

NARRATIVE: CASE EVENT DATE: 20140827
